FAERS Safety Report 14471670 (Version 2)
Quarter: 2018Q2

REPORT INFORMATION
  Report Type: Spontaneous
  Country: US (occurrence: US)
  Receive Date: 20180131
  Receipt Date: 20180427
  Transmission Date: 20180711
  Serious: No
  Sender: FDA-Public Use
  Company Number: US-MYLANLABS-2018M1004454

PATIENT
  Age: 50 Year
  Sex: Female

DRUGS (2)
  1. COPAXONE [Suspect]
     Active Substance: GLATIRAMER ACETATE
     Indication: PRODUCT USED FOR UNKNOWN INDICATION
  2. GLATIRAMER [Suspect]
     Active Substance: GLATIRAMER
     Indication: RELAPSING-REMITTING MULTIPLE SCLEROSIS
     Dosage: UNK
     Route: 058
     Dates: start: 20180101

REACTIONS (2)
  - Injection site erythema [Not Recovered/Not Resolved]
  - Injection site mass [None]

NARRATIVE: CASE EVENT DATE: 20180101
